FAERS Safety Report 7719468-8 (Version None)
Quarter: 2011Q3

REPORT INFORMATION
  Report Type: 
  Country: None (occurrence: None)
  Receive Date: 20110830
  Receipt Date: 20110822
  Transmission Date: 20111222
  Serious: Yes (Other)
  Sender: FDA-Public Use
  Company Number: US-BAYER-201036865NA

PATIENT
  Age: 33 Year
  Sex: Female
  Weight: 86.168 kg

DRUGS (3)
  1. LORA TAB [Concomitant]
     Indication: PAIN
  2. YASMIN [Suspect]
     Indication: ORAL CONTRACEPTION
     Route: 048
     Dates: start: 20031201, end: 20070501
  3. PREVACID [Concomitant]
     Dosage: UNK
     Dates: start: 20040416

REACTIONS (6)
  - PAIN [None]
  - CHOLECYSTITIS [None]
  - GALLBLADDER DISORDER [None]
  - GASTRIC DISORDER [None]
  - NAUSEA [None]
  - SCAR [None]
